FAERS Safety Report 7343208-8 (Version None)
Quarter: 2011Q1

REPORT INFORMATION
  Report Type: 
  Country: None (occurrence: None)
  Receive Date: 20110310
  Receipt Date: 20110302
  Transmission Date: 20110831
  Serious: No
  Sender: FDA-Public Use
  Company Number: JP-BAYER-2011-019492

PATIENT
  Sex: Male

DRUGS (1)
  1. GLUCOBAY [Suspect]
     Route: 048

REACTIONS (2)
  - OEDEMA [None]
  - HOT FLUSH [None]
